FAERS Safety Report 17841114 (Version 4)
Quarter: 2021Q1

REPORT INFORMATION
  Report Type: Spontaneous
  Country: US (occurrence: US)
  Receive Date: 20200529
  Receipt Date: 20210225
  Transmission Date: 20210419
  Serious: Yes (Hospitalization)
  Sender: FDA-Public Use
  Company Number: US-PFIZER INC-2020211538

PATIENT
  Age: 67 Year
  Sex: Female

DRUGS (1)
  1. VYNDAMAX [Suspect]
     Active Substance: TAFAMIDIS
     Dosage: 61 MG, UNK

REACTIONS (9)
  - Intermittent claudication [Unknown]
  - COVID-19 [Recovered/Resolved]
  - Chest discomfort [Unknown]
  - Palpitations [Unknown]
  - Oedema [Unknown]
  - Chest pain [Unknown]
  - Dyspnoea [Unknown]
  - Cardiac disorder [Unknown]
  - Back pain [Unknown]

NARRATIVE: CASE EVENT DATE: 20201014
